FAERS Safety Report 7132194-1 (Version None)
Quarter: 2010Q4

REPORT INFORMATION
  Report Type: 
  Country: None (occurrence: None)
  Receive Date: 20101202
  Receipt Date: 20101125
  Transmission Date: 20110411
  Serious: Yes (Other)
  Sender: FDA-Public Use
  Company Number: FR-GENZYME-MOZO-1000446

PATIENT
  Age: 55 Year
  Sex: Male

DRUGS (2)
  1. MOZOBIL [Suspect]
     Indication: HAEMATOPOIETIC STEM CELL MOBILISATION
     Route: 058
  2. MOZOBIL [Suspect]
     Indication: NON-HODGKIN'S LYMPHOMA

REACTIONS (1)
  - ANAPHYLACTIC SHOCK [None]
